FAERS Safety Report 15436351 (Version 1)
Quarter: 2018Q3

REPORT INFORMATION
  Report Type: Spontaneous
  Country: FR (occurrence: FR)
  Receive Date: 20180927
  Receipt Date: 20180927
  Transmission Date: 20181010
  Serious: Yes (Death, Hospitalization)
  Sender: FDA-Public Use
  Company Number: FR-SA-2016SA115107

PATIENT
  Sex: Female

DRUGS (2)
  1. FABRAZYME [Suspect]
     Active Substance: AGALSIDASE BETA
     Dosage: UNK UNK, QOW
     Route: 041
  2. FABRAZYME [Suspect]
     Active Substance: AGALSIDASE BETA
     Dosage: 1 VIAL?2 VIAL ALTERNATIVELY
     Route: 041
     Dates: start: 20180525

REACTIONS (3)
  - Unevaluable event [Not Recovered/Not Resolved]
  - Left ventricular hypertrophy [Unknown]
  - Concomitant disease progression [Fatal]
